FAERS Safety Report 6287295-7 (Version None)
Quarter: 2009Q3

REPORT INFORMATION
  Report Type: 
  Country: None (occurrence: None)
  Receive Date: 20090728
  Receipt Date: 20090724
  Transmission Date: 20100115
  Serious: Yes (Death, Other)
  Sender: FDA-Public Use
  Company Number: PHHY2009FR30835

PATIENT
  Age: 15 Year
  Sex: Female

DRUGS (10)
  1. CYCLOSPORINE [Suspect]
     Indication: CORD BLOOD TRANSPLANT THERAPY
  2. CYCLOSPORINE [Suspect]
     Indication: PROPHYLAXIS AGAINST GRAFT VERSUS HOST DISEASE
  3. CORTICOSTEROIDS [Suspect]
     Indication: CORD BLOOD TRANSPLANT THERAPY
     Route: 042
  4. CORTICOSTEROIDS [Suspect]
     Indication: PROPHYLAXIS AGAINST GRAFT VERSUS HOST DISEASE
  5. BUSULFAN [Concomitant]
  6. CYCLOPHOSPHAMIDE [Concomitant]
  7. ANTITHYMOCYTE IMMUNOGLOBULIN [Concomitant]
  8. CEFTAZIDIME [Concomitant]
  9. VANCOMYCIN [Concomitant]
  10. METRONIDAZOLE [Concomitant]

REACTIONS (8)
  - ACUTE RESPIRATORY FAILURE [None]
  - CENTRAL NERVOUS SYSTEM LESION [None]
  - CONFUSIONAL STATE [None]
  - CYTOMEGALOVIRUS INFECTION [None]
  - HEPATOTOXICITY [None]
  - INTERSTITIAL LUNG DISEASE [None]
  - PYREXIA [None]
  - TOXOPLASMOSIS [None]
